FAERS Safety Report 9899845 (Version 2)
Quarter: 2014Q3

REPORT INFORMATION
  Report Type: Spontaneous
  Country: US (occurrence: US)
  Receive Date: 20140214
  Receipt Date: 20140812
  Transmission Date: 20150326
  Serious: Yes (Hospitalization)
  Sender: FDA-Public Use
  Company Number: US-009507513-1402USA006509

PATIENT
  Sex: Female

DRUGS (1)
  1. NUVARING [Suspect]
     Active Substance: ETHINYL ESTRADIOL\ETONOGESTREL
     Indication: MENORRHAGIA
     Dosage: UNK
     Route: 067
     Dates: start: 200604, end: 20060426

REACTIONS (8)
  - Anaemia [Unknown]
  - Thrombophlebitis superficial [Unknown]
  - Deep vein thrombosis [Unknown]
  - Transfusion [Unknown]
  - Peripheral embolism [Unknown]
  - Endometrial ablation [Unknown]
  - Menorrhagia [Unknown]
  - Thrombosis [Unknown]

NARRATIVE: CASE EVENT DATE: 200604
